FAERS Safety Report 8366862-0 (Version None)
Quarter: 2012Q2

REPORT INFORMATION
  Report Type: 
  Country: None (occurrence: None)
  Receive Date: 20120517
  Receipt Date: 20120507
  Transmission Date: 20120825
  Serious: Yes (Hospitalization, Other)
  Sender: FDA-Public Use
  Company Number: CA-JNJFOC-20111210502

PATIENT
  Sex: Female
  Weight: 94 kg

DRUGS (11)
  1. REMICADE [Suspect]
     Indication: COLITIS ULCERATIVE
     Route: 042
  2. ASACOL [Concomitant]
     Route: 065
  3. EFFEXOR [Concomitant]
     Route: 065
  4. REMICADE [Suspect]
     Dosage: 32 TOTAL INFUSIONS
     Route: 042
  5. OMEGA 3-6-9 [Concomitant]
  6. NITROGLYCERIN [Concomitant]
     Route: 065
  7. PERINDOPRIL ERBUMINE [Concomitant]
     Route: 065
  8. ALL OTHER THERAPEUTICS [Concomitant]
     Route: 065
  9. ASPIRIN [Concomitant]
     Route: 065
  10. CRESTOR [Concomitant]
     Route: 065
  11. MULTI-VITAMINS [Concomitant]
     Route: 065

REACTIONS (2)
  - BENIGN BREAST NEOPLASM [None]
  - PHYLLODES TUMOUR [None]
